FAERS Safety Report 9540193 (Version 1)
Quarter: 2013Q3

REPORT INFORMATION
  Report Type: Spontaneous
  Country: JP (occurrence: JP)
  Receive Date: 20130920
  Receipt Date: 20130920
  Transmission Date: 20140515
  Serious: Yes (Other)
  Sender: FDA-Public Use
  Company Number: JP-ASTRAZENECA-2013SE69140

PATIENT
  Age: 74 Year
  Sex: Female

DRUGS (3)
  1. DIPRIVAN [Suspect]
     Indication: GENERAL ANAESTHESIA
     Route: 042
  2. ROCURONIUM [Concomitant]
     Indication: GENERAL ANAESTHESIA
  3. FENTANYL [Concomitant]
     Indication: GENERAL ANAESTHESIA

REACTIONS (1)
  - Delayed recovery from anaesthesia [Recovered/Resolved]
